FAERS Safety Report 7149608-3 (Version None)
Quarter: 2010Q4

REPORT INFORMATION
  Report Type: 
  Country: None (occurrence: None)
  Receive Date: 20101209
  Receipt Date: 20101201
  Transmission Date: 20110411
  Serious: Yes (Death)
  Sender: FDA-Public Use
  Company Number: GB-GENENTECH-305649

PATIENT
  Sex: Male

DRUGS (2)
  1. RITUXIMAB [Suspect]
     Indication: RHEUMATOID ARTHRITIS
     Dosage: 1000 MG, UNK
     Route: 065
     Dates: start: 20080605
  2. METHOTREXATE [Concomitant]
     Indication: PRODUCT USED FOR UNKNOWN INDICATION
     Dosage: UNK
     Dates: start: 20070829

REACTIONS (1)
  - BRAIN NEOPLASM [None]
